FAERS Safety Report 11925111 (Version 2)
Quarter: 2016Q1

REPORT INFORMATION
  Report Type: Report from Study
  Country: MY (occurrence: MY)
  Receive Date: 20160118
  Receipt Date: 20160205
  Transmission Date: 20160526
  Serious: Yes (Death, Hospitalization)
  Sender: FDA-Public Use
  Company Number: PHHY2016MY004762

PATIENT
  Age: 48 Year
  Sex: Female

DRUGS (1)
  1. GLIVEC [Suspect]
     Active Substance: IMATINIB MESYLATE
     Indication: CHRONIC MYELOID LEUKAEMIA
     Dosage: 400 MG, UNK
     Route: 065
     Dates: start: 20140203

REACTIONS (4)
  - Encephalitis [Fatal]
  - Confusional state [Fatal]
  - Pyrexia [Fatal]
  - Musculoskeletal stiffness [Fatal]

NARRATIVE: CASE EVENT DATE: 201511
